FAERS Safety Report 6993197-0 (Version None)
Quarter: 2010Q3

REPORT INFORMATION
  Report Type: 
  Country: None (occurrence: None)
  Receive Date: 20100917
  Receipt Date: 20091222
  Transmission Date: 20110219
  Serious: Yes (Hospitalization, Other)
  Sender: FDA-Public Use
  Company Number: US-ASTRAZENECA-2009UW21088

PATIENT
  Age: 48 Year
  Sex: Male
  Weight: 68 kg

DRUGS (10)
  1. SEROQUEL [Suspect]
     Indication: SCHIZOPHRENIA
     Route: 048
     Dates: start: 20010101, end: 20080301
  2. SEROQUEL [Suspect]
     Indication: SLEEP DISORDER
     Route: 048
     Dates: start: 20010101, end: 20080301
  3. GEODON [Concomitant]
     Dates: start: 20080301
  4. HALDOL [Concomitant]
  5. NAVANE [Concomitant]
  6. RISPERDAL [Concomitant]
  7. STELAZINE [Concomitant]
     Dosage: 10-20 MG
     Dates: start: 19800101
  8. TRILAFON [Concomitant]
     Dates: start: 19860101, end: 19870101
  9. ZYPREXA [Concomitant]
  10. KLONOPIN [Concomitant]
     Dates: start: 20000101

REACTIONS (6)
  - BLOOD CHOLESTEROL INCREASED [None]
  - BLOOD TRIGLYCERIDES INCREASED [None]
  - DEHYDRATION [None]
  - HYPERGLYCAEMIA [None]
  - TARDIVE DYSKINESIA [None]
  - TYPE 2 DIABETES MELLITUS [None]
